FAERS Safety Report 11127994 (Version 2)
Quarter: 2015Q3

REPORT INFORMATION
  Report Type: Spontaneous
  Country: US (occurrence: US)
  Receive Date: 20150521
  Receipt Date: 20150729
  Transmission Date: 20151125
  Serious: Yes (Hospitalization)
  Sender: FDA-Public Use
  Company Number: US-PFIZER INC-2015170097

PATIENT
  Age: 65 Year
  Sex: Female
  Weight: 77.98 kg

DRUGS (1)
  1. REVATIO [Suspect]
     Active Substance: SILDENAFIL CITRATE
     Indication: PULMONARY ARTERIAL HYPERTENSION
     Dosage: 20 MG, 3X/DAY
     Route: 048
     Dates: start: 20120320

REACTIONS (3)
  - Product label issue [Recovered/Resolved]
  - Expired product administered [Recovered/Resolved]
  - Carcinoid tumour [Recovered/Resolved]

NARRATIVE: CASE EVENT DATE: 201505
